FAERS Safety Report 7472262-8 (Version None)
Quarter: 2011Q2

REPORT INFORMATION
  Report Type: 
  Country: None (occurrence: None)
  Receive Date: 20110511
  Receipt Date: 20110429
  Transmission Date: 20111010
  Serious: Yes (Other)
  Sender: FDA-Public Use
  Company Number: US-JNJFOC-20110500319

PATIENT
  Sex: Male
  Weight: 108.86 kg

DRUGS (1)
  1. SIMPONI [Suspect]
     Indication: RHEUMATOID ARTHRITIS
     Route: 058

REACTIONS (4)
  - ABASIA [None]
  - PAIN [None]
  - DEVICE MALFUNCTION [None]
  - DRUG DOSE OMISSION [None]
